FAERS Safety Report 16185909 (Version 5)
Quarter: 2019Q3

REPORT INFORMATION
  Report Type: Report from Study
  Country: CA (occurrence: CA)
  Receive Date: 20190411
  Receipt Date: 20190828
  Transmission Date: 20191004
  Serious: Yes (Other)
  Sender: FDA-Public Use
  Company Number: PHHY2018CA007366

PATIENT
  Age: 65 Year
  Sex: Female

DRUGS (12)
  1. COSENTYX [Suspect]
     Active Substance: SECUKINUMAB
     Indication: PSORIASIS
     Dosage: 150 MG, QMO
     Route: 058
     Dates: start: 20180313
  2. COSENTYX [Suspect]
     Active Substance: SECUKINUMAB
     Dosage: 300 MG, QMO
     Route: 058
     Dates: start: 20190813
  3. DOMPERIDONE [Suspect]
     Active Substance: DOMPERIDONE
     Indication: GASTROINTESTINAL DISORDER
     Route: 065
  4. COSENTYX [Suspect]
     Active Substance: SECUKINUMAB
     Indication: ANKYLOSING SPONDYLITIS
     Dosage: 150 MG, UNK
     Route: 058
     Dates: start: 20180213
  5. COSENTYX [Suspect]
     Active Substance: SECUKINUMAB
     Dosage: 150 MG, QMO
     Route: 058
     Dates: start: 20180613
  6. COSENTYX [Suspect]
     Active Substance: SECUKINUMAB
     Dosage: 300 MG, QMO
     Route: 058
  7. CYTOTEC [Concomitant]
     Active Substance: MISOPROSTOL
     Indication: PRODUCT USED FOR UNKNOWN INDICATION
     Route: 065
  8. COSENTYX [Suspect]
     Active Substance: SECUKINUMAB
     Dosage: 300 MG, QMO
     Route: 058
     Dates: start: 20190613
  9. VOLTAREN [Concomitant]
     Active Substance: DICLOFENAC SODIUM
     Indication: PRODUCT USED FOR UNKNOWN INDICATION
     Route: 065
  10. COSENTYX [Suspect]
     Active Substance: SECUKINUMAB
     Dosage: 150 MG, QMO
     Route: 058
     Dates: start: 20180413
  11. COSENTYX [Suspect]
     Active Substance: SECUKINUMAB
     Dosage: 150 MG, UNK
     Route: 058
  12. CELEBREX [Concomitant]
     Active Substance: CELECOXIB
     Indication: PRODUCT USED FOR UNKNOWN INDICATION
     Route: 065

REACTIONS (21)
  - Middle insomnia [Unknown]
  - Drug ineffective [Recovering/Resolving]
  - Ankylosing spondylitis [Unknown]
  - Psoriasis [Recovering/Resolving]
  - Urticaria [Unknown]
  - Fatigue [Unknown]
  - Arthralgia [Unknown]
  - Pain [Not Recovered/Not Resolved]
  - Pruritus [Unknown]
  - Back pain [Unknown]
  - Joint swelling [Unknown]
  - Erythema [Unknown]
  - Uveitis [Unknown]
  - Neck pain [Unknown]
  - Pneumonia [Unknown]
  - Pulmonary mass [Unknown]
  - Pleural effusion [Unknown]
  - Skin plaque [Recovering/Resolving]
  - Pyrexia [Unknown]
  - Musculoskeletal stiffness [Unknown]
  - Anxiety [Unknown]

NARRATIVE: CASE EVENT DATE: 201804
